FAERS Safety Report 21385736 (Version 1)
Quarter: 2022Q3

REPORT INFORMATION
  Report Type: Spontaneous
  Country: US (occurrence: None)
  Receive Date: 20220926
  Receipt Date: 20220926
  Transmission Date: 20221027
  Serious: Yes (Disabling)
  Sender: FDA-Public Use
  Company Number: None

PATIENT
  Age: 67 Year
  Sex: Female
  Weight: 56.7 kg

DRUGS (16)
  1. PROLIA [Suspect]
     Active Substance: DENOSUMAB
     Indication: Bone density decreased
     Dosage: OTHER FREQUENCY : TWICE YEARLY;?OTHER ROUTE : INJECTION;?
     Route: 050
     Dates: start: 20220715, end: 20220715
  2. HUMIRA [Suspect]
     Active Substance: ADALIMUMAB
  3. XELJANZ [Suspect]
     Active Substance: TOFACITINIB CITRATE
  4. METHOTRATE 2.5MG X 7-WEEKLY [Concomitant]
  5. PLAQUEUIL 200MG -DAILY [Concomitant]
  6. FOLIC ACID 1MG-DAILY [Concomitant]
  7. OLMESAITION-DAILY [Concomitant]
  8. CYCLOSPORIVE EYE DROPS-2XDAILY [Concomitant]
  9. PREDUISONE 5MG-DAILY [Concomitant]
  10. POTASSIUM 10MG-DAILY [Concomitant]
  11. ALLEGRA 180MG-DAILY [Concomitant]
  12. ASPRIN 81MG-DAILY [Concomitant]
  13. MULTIVITAMINS-DAILY [Concomitant]
  14. TYLENOL 650MG-2 PER DAY [Concomitant]
  15. VOLTAREM 190 DAILY [Concomitant]
  16. PHILHPS COLN HEALTH- 1PER DAY [Concomitant]

REACTIONS (4)
  - Gait disturbance [None]
  - Musculoskeletal discomfort [None]
  - Musculoskeletal discomfort [None]
  - Back disorder [None]

NARRATIVE: CASE EVENT DATE: 20220819
